FAERS Safety Report 24440667 (Version 1)
Quarter: 2024Q4

REPORT INFORMATION
  Report Type: Spontaneous
  Country: PT (occurrence: PT)
  Receive Date: 20241016
  Receipt Date: 20241016
  Transmission Date: 20250115
  Serious: Yes (Other)
  Sender: SANDOZ
  Company Number: PT-002147023-NVSC2023PT145745

PATIENT
  Age: 45 Year
  Sex: Female

DRUGS (7)
  1. ATORVASTATIN [Suspect]
     Active Substance: ATORVASTATIN
     Indication: Product used for unknown indication
     Dosage: 40 MG
     Route: 065
  2. LETROZOLE [Suspect]
     Active Substance: LETROZOLE
     Indication: Product used for unknown indication
     Dosage: UNK
     Route: 065
     Dates: start: 20211206
  3. HYDROCHLOROTHIAZIDE\LISINOPRIL [Suspect]
     Active Substance: HYDROCHLOROTHIAZIDE\LISINOPRIL
     Indication: Product used for unknown indication
     Dosage: 20/12.5  MG
     Route: 065
  4. METFORMIN\SITAGLIPTIN [Suspect]
     Active Substance: METFORMIN\SITAGLIPTIN
     Indication: Product used for unknown indication
     Dosage: 50/1000 MG
     Route: 065
  5. PANTOPRAZOLE [Suspect]
     Active Substance: PANTOPRAZOLE
     Indication: Product used for unknown indication
     Dosage: 20 MG
     Route: 065
  6. RIBOCICLIB [Suspect]
     Active Substance: RIBOCICLIB
     Indication: Product used for unknown indication
     Dosage: UNK
     Route: 065
     Dates: start: 20211206
  7. GOSERELIN [Concomitant]
     Active Substance: GOSERELIN
     Indication: Product used for unknown indication
     Dosage: UNK, QMO, (3,6)
     Route: 065
     Dates: start: 20211108

REACTIONS (14)
  - Hormone receptor positive breast cancer [Recovering/Resolving]
  - Metastases to liver [Unknown]
  - Invasive breast carcinoma [Unknown]
  - Dilatation intrahepatic duct acquired [Unknown]
  - Metastases to lymph nodes [Unknown]
  - Alanine aminotransferase increased [Recovered/Resolved]
  - Blood bilirubin increased [Recovered/Resolved]
  - Breast mass [Unknown]
  - Carbohydrate antigen 15-3 increased [Recovered/Resolved]
  - Oestradiol decreased [Not Recovered/Not Resolved]
  - Aspartate aminotransferase increased [Recovered/Resolved]
  - Hepatic lesion [Unknown]
  - Malaise [Recovered/Resolved]
  - Decreased appetite [Recovered/Resolved]
